FAERS Safety Report 21539031 (Version 2)
Quarter: 2022Q4

REPORT INFORMATION
  Report Type: Spontaneous
  Country: JP (occurrence: JP)
  Receive Date: 20221102
  Receipt Date: 20221229
  Transmission Date: 20230112
  Serious: Yes (Hospitalization, Other)
  Sender: FDA-Public Use
  Company Number: JP-DSJP-DSJ-2022-138875

PATIENT
  Age: 78 Year
  Sex: Female

DRUGS (17)
  1. BEVACIZUMAB [Suspect]
     Active Substance: BEVACIZUMAB
     Indication: Colon cancer
     Dosage: 215 MILLIGRAM
     Route: 040
     Dates: start: 20221012
  2. BEVACIZUMAB [Suspect]
     Active Substance: BEVACIZUMAB
     Indication: Adenocarcinoma
     Dosage: UNK
     Route: 065
  3. OXALIPLATIN [Concomitant]
     Active Substance: OXALIPLATIN
     Indication: Colon cancer
     Dosage: 93 MILLIGRAM, Q2WK
     Route: 040
     Dates: start: 20221012, end: 20221012
  4. OXALIPLATIN [Concomitant]
     Active Substance: OXALIPLATIN
     Indication: Adenocarcinoma
     Dosage: UNK
  5. FLUOROURACIL [Concomitant]
     Active Substance: FLUOROURACIL
     Indication: Colon cancer
     Dosage: 442 MILLIGRAM, Q2WK
     Route: 042
     Dates: start: 20221012, end: 20221012
  6. FLUOROURACIL [Concomitant]
     Active Substance: FLUOROURACIL
     Indication: Adenocarcinoma
     Dosage: 2650 MILLIGRAM, Q2WK
     Route: 042
     Dates: start: 20221012, end: 20221014
  7. EPLERENONE [Concomitant]
     Active Substance: EPLERENONE
     Indication: Hypertension
     Dosage: 25 MILLIGRAM, QD
     Route: 048
  8. BISOPROLOL FUMARATE [Concomitant]
     Active Substance: BISOPROLOL FUMARATE
     Indication: Cardiac failure chronic
     Dosage: 2.5 MILLIGRAM, QD
     Route: 048
  9. TOFOGLIFLOZIN [Concomitant]
     Active Substance: TOFOGLIFLOZIN
     Indication: Diabetes mellitus
     Dosage: 20 MILLIGRAM, QD
     Route: 048
  10. NEXIUM [Concomitant]
     Active Substance: ESOMEPRAZOLE MAGNESIUM
     Indication: Product used for unknown indication
     Dosage: 20 MILLIGRAM, QD
     Route: 048
  11. MAGNESIUM OXIDE [Concomitant]
     Active Substance: MAGNESIUM OXIDE
     Indication: Product used for unknown indication
     Dosage: 500 MILLIGRAM, BID
     Route: 048
  12. PANTETHINE [Concomitant]
     Active Substance: PANTETHINE
     Indication: Product used for unknown indication
     Dosage: 100 MILLIGRAM, BID
     Route: 048
  13. DIETARY SUPPLEMENT\PROBIOTICS [Concomitant]
     Active Substance: DIETARY SUPPLEMENT\PROBIOTICS
     Indication: Product used for unknown indication
     Dosage: UNK UNK, TID
     Route: 048
  14. CALONAL [Concomitant]
     Active Substance: ACETAMINOPHEN
     Indication: Product used for unknown indication
     Dosage: 300 MILLIGRAM, AS NEEDED
     Route: 048
  15. CELECOXIB [Concomitant]
     Active Substance: CELECOXIB
     Indication: Product used for unknown indication
     Dosage: 100 MILLIGRAM, BID
     Route: 048
  16. OPALMON [Concomitant]
     Active Substance: LIMAPROST
     Indication: Product used for unknown indication
     Dosage: 5 MICROGRAM, TID
     Route: 048
  17. Flomox [Concomitant]
     Indication: Product used for unknown indication
     Dosage: 100 MILLIGRAM, TID
     Route: 048

REACTIONS (1)
  - Gastrointestinal perforation [Recovering/Resolving]

NARRATIVE: CASE EVENT DATE: 20221021
